FAERS Safety Report 17314181 (Version 7)
Quarter: 2021Q2

REPORT INFORMATION
  Report Type: Other
  Country: GB (occurrence: GB)
  Receive Date: 20200124
  Receipt Date: 20210630
  Transmission Date: 20210716
  Serious: Yes (Hospitalization, Other)
  Sender: FDA-Public Use
  Company Number: GB-ROCHE-2094640

PATIENT
  Age: 62 Year
  Sex: Female

DRUGS (103)
  1. QUININE SULPHATE [Concomitant]
     Active Substance: QUININE SULFATE
     Route: 048
     Dates: start: 20040219
  2. RANITIDINE. [Concomitant]
     Active Substance: RANITIDINE
     Dosage: TAKEN PRIOR TO STUDY
     Route: 042
     Dates: start: 20180202
  3. METRONIDAZOLE. [Concomitant]
     Active Substance: METRONIDAZOLE
     Route: 048
     Dates: start: 201910, end: 20191009
  4. DOXYCYCLINE. [Concomitant]
     Active Substance: DOXYCYCLINE
     Route: 048
     Dates: start: 20181113, end: 20181113
  5. ONDANSETRON [Concomitant]
     Active Substance: ONDANSETRON
     Route: 048
     Dates: start: 20200214, end: 20200214
  6. TEICOPLANIN [Concomitant]
     Active Substance: TEICOPLANIN
     Route: 065
     Dates: start: 20181220, end: 20181224
  7. SILVER NITRATE. [Concomitant]
     Active Substance: SILVER NITRATE
     Route: 061
     Dates: start: 20190730, end: 20190730
  8. EUMOVATE [Concomitant]
     Active Substance: CLOBETASONE BUTYRATE
     Indication: PRURITUS
     Route: 061
     Dates: start: 20190403
  9. CLARITHROMYCIN. [Concomitant]
     Active Substance: CLARITHROMYCIN
     Route: 048
     Dates: start: 20190717, end: 20190724
  10. TRIMETHOPRIM. [Concomitant]
     Active Substance: TRIMETHOPRIM
     Route: 048
     Dates: start: 20190813, end: 20190815
  11. PACLITAXEL. [Suspect]
     Active Substance: PACLITAXEL
     Indication: BREAST CANCER
     Route: 042
     Dates: start: 20180202, end: 20180518
  12. TRASTUZUMAB EMTANSINE [Suspect]
     Active Substance: ADO-TRASTUZUMAB EMTANSINE
     Indication: BREAST CANCER
     Route: 042
     Dates: start: 20181019, end: 20190927
  13. OMEPRAZOLE. [Concomitant]
     Active Substance: OMEPRAZOLE
     Route: 048
     Dates: start: 20191107, end: 20200205
  14. RANITIDINE. [Concomitant]
     Active Substance: RANITIDINE
     Dates: start: 20181123, end: 20181123
  15. RANITIDINE. [Concomitant]
     Active Substance: RANITIDINE
     Route: 048
     Dates: start: 20200212
  16. CHLORPHENAMINE [Concomitant]
     Active Substance: CHLORPHENIRAMINE MALEATE
     Route: 048
     Dates: start: 20190909, end: 20190915
  17. METOCLOPRAMIDE. [Concomitant]
     Active Substance: METOCLOPRAMIDE
     Dosage: TAKEN PRIOR TO STUDY
     Route: 048
     Dates: start: 20180202
  18. PIRITON [Concomitant]
     Active Substance: CHLORPHENIRAMINE MALEATE
     Route: 048
     Dates: start: 20180125
  19. PARACETAMOL [Concomitant]
     Active Substance: ACETAMINOPHEN
     Route: 042
     Dates: start: 20181220, end: 20181220
  20. METRONIDAZOLE. [Concomitant]
     Active Substance: METRONIDAZOLE
     Route: 048
     Dates: start: 20190916, end: 20190916
  21. GENTAMYCIN [Concomitant]
     Active Substance: GENTAMICIN
     Route: 042
     Dates: start: 20181119, end: 20181119
  22. SUGAMMADEX [Concomitant]
     Active Substance: SUGAMMADEX
     Route: 042
     Dates: start: 20181220, end: 20181220
  23. NACL [Concomitant]
     Active Substance: SODIUM CHLORIDE
     Route: 042
     Dates: start: 20181122, end: 20181123
  24. SODIUM CHLORIDE. [Concomitant]
     Active Substance: SODIUM CHLORIDE
     Route: 042
     Dates: start: 20181122, end: 20181123
  25. TRANEXAMIC ACID. [Concomitant]
     Active Substance: TRANEXAMIC ACID
     Route: 048
     Dates: start: 20190804, end: 20190806
  26. TERBUTALINE [Concomitant]
     Active Substance: TERBUTALINE
     Route: 055
     Dates: start: 20030108
  27. ADCAL?D3 [Concomitant]
     Active Substance: CALCIUM CARBONATE\CHOLECALCIFEROL
     Route: 048
     Dates: start: 20140127
  28. COCODAMOL [Concomitant]
     Active Substance: ACETAMINOPHEN\CODEINE PHOSPHATE
     Dosage: 30/500 MG FORM STRENGTH
     Route: 048
     Dates: start: 20030104, end: 20180225
  29. CHLORPHENAMINE [Concomitant]
     Active Substance: CHLORPHENIRAMINE MALEATE
     Dosage: TAKEN PRIOR TO STUDY
     Route: 042
     Dates: start: 20180202
  30. METOCLOPRAMIDE. [Concomitant]
     Active Substance: METOCLOPRAMIDE
     Dosage: AS NEEDED
     Route: 048
     Dates: start: 201910
  31. FLUCONAZOLE. [Concomitant]
     Active Substance: FLUCONAZOLE
     Route: 048
     Dates: start: 20180125
  32. ZOLEDRONIC ACID [Concomitant]
     Active Substance: ZOLEDRONIC ACID
     Indication: METASTASES TO BONE
     Route: 042
     Dates: start: 20181019
  33. DOXYCYCLINE. [Concomitant]
     Active Substance: DOXYCYCLINE
     Route: 048
     Dates: start: 20181114, end: 20181119
  34. VANCOMYCIN [Concomitant]
     Active Substance: VANCOMYCIN
     Route: 042
     Dates: start: 20181120, end: 20181122
  35. RED BLOOD CELLS [Concomitant]
     Active Substance: HUMAN RED BLOOD CELL
     Indication: GASTROINTESTINAL HAEMORRHAGE
     Dosage: 3 UNIT
     Route: 042
     Dates: start: 20190523, end: 20190524
  36. GENTAMYCIN [Concomitant]
     Active Substance: GENTAMICIN
     Route: 011
     Dates: start: 20190911, end: 20190911
  37. NACL [Concomitant]
     Active Substance: SODIUM CHLORIDE
     Route: 042
     Dates: start: 20181123, end: 20181123
  38. AMOXICILLIN. [Concomitant]
     Active Substance: AMOXICILLIN
     Route: 042
     Dates: start: 20190911, end: 20190915
  39. HYDROCORTISONE. [Concomitant]
     Active Substance: HYDROCORTISONE
     Route: 061
     Dates: start: 20180605
  40. FOLIC ACID. [Concomitant]
     Active Substance: FOLIC ACID
     Route: 048
     Dates: start: 20030207
  41. CLOTRIMAZOLE. [Concomitant]
     Active Substance: CLOTRIMAZOLE
     Route: 061
     Dates: start: 20180125
  42. ONDANSETRON [Concomitant]
     Active Substance: ONDANSETRON
     Route: 048
     Dates: start: 20190920, end: 20190920
  43. SILVER NITRATE. [Concomitant]
     Active Substance: SILVER NITRATE
     Indication: HAEMORRHAGE
     Route: 061
     Dates: start: 20190510, end: 20190510
  44. SILVER NITRATE. [Concomitant]
     Active Substance: SILVER NITRATE
     Route: 061
     Dates: start: 20190522, end: 20190522
  45. RED BLOOD CELLS [Concomitant]
     Active Substance: HUMAN RED BLOOD CELL
     Indication: HAEMORRHAGE
     Route: 042
     Dates: start: 20190511, end: 20190511
  46. GLUCOSE;SODIUM CHLORIDE [Concomitant]
     Active Substance: DEXTROSE\SODIUM CHLORIDE
     Indication: GASTROINTESTINAL HAEMORRHAGE
     Dosage: 0.18NA CL 4% GLUCOSE
     Route: 042
     Dates: start: 20190523, end: 20190523
  47. GENTAMYCIN [Concomitant]
     Active Substance: GENTAMICIN
     Route: 042
     Dates: start: 20190913, end: 20190913
  48. FEXOFENADINE [Concomitant]
     Active Substance: FEXOFENADINE HYDROCHLORIDE
     Indication: PRURITUS
     Route: 048
     Dates: start: 20190403, end: 20190403
  49. FEXOFENADINE [Concomitant]
     Active Substance: FEXOFENADINE HYDROCHLORIDE
     Indication: SKIN ABRASION
     Route: 048
     Dates: start: 201910, end: 20191119
  50. CO?AMOXICLAV [Concomitant]
     Active Substance: AMOXICILLIN\CLAVULANATE POTASSIUM
     Route: 048
     Dates: start: 20190915, end: 20190916
  51. CARMELLOSE [Concomitant]
     Active Substance: CARBOXYMETHYLCELLULOSE
     Route: 061
     Dates: start: 20181220, end: 20190116
  52. SODIUM CHLORIDE. [Concomitant]
     Active Substance: SODIUM CHLORIDE
     Indication: GASTROINTESTINAL HAEMORRHAGE
     Route: 042
     Dates: start: 20181123, end: 20181123
  53. SODIUM CHLORIDE. [Concomitant]
     Active Substance: SODIUM CHLORIDE
     Route: 042
     Dates: start: 20190522, end: 20190522
  54. PENTASA [Concomitant]
     Active Substance: MESALAMINE
     Indication: CROHN^S DISEASE
     Dosage: SACHETS
     Route: 048
     Dates: start: 20131217, end: 20180730
  55. CETRIZINE [Concomitant]
     Active Substance: CETIRIZINE HYDROCHLORIDE
     Route: 048
     Dates: start: 20080430
  56. COLECALCIFEROL [Concomitant]
     Active Substance: CHOLECALCIFEROL
     Route: 048
     Dates: start: 20180926
  57. CHLORHEXIDINE [Concomitant]
     Active Substance: CHLORHEXIDINE
     Dosage: AS NEEDED
     Dates: start: 20181019
  58. METRONIDAZOLE. [Concomitant]
     Active Substance: METRONIDAZOLE
     Route: 048
     Dates: start: 20190911, end: 20190915
  59. METRONIDAZOLE. [Concomitant]
     Active Substance: METRONIDAZOLE
     Route: 048
     Dates: start: 20190918, end: 20190918
  60. ONDANSETRON [Concomitant]
     Active Substance: ONDANSETRON
     Dosage: AS NEEDED
     Route: 042
     Dates: start: 20181119, end: 20181122
  61. SALINE [Concomitant]
     Active Substance: SODIUM CHLORIDE
     Indication: GASTROINTESTINAL HAEMORRHAGE
     Route: 042
     Dates: start: 20190522, end: 20190522
  62. GENTAMYCIN [Concomitant]
     Active Substance: GENTAMICIN
     Indication: SEPSIS
     Route: 042
     Dates: start: 20190526, end: 20190526
  63. TRANEXAMIC ACID. [Concomitant]
     Active Substance: TRANEXAMIC ACID
     Route: 048
     Dates: start: 20190804, end: 20190806
  64. CIPROFLOXACIN. [Concomitant]
     Active Substance: CIPROFLOXACIN
     Route: 048
     Dates: start: 201910, end: 20191009
  65. CETIRIZINE [Concomitant]
     Active Substance: CETIRIZINE HYDROCHLORIDE
     Route: 048
     Dates: start: 20080430
  66. IRON [Concomitant]
     Active Substance: IRON
     Route: 048
     Dates: start: 20190730
  67. SODIUM CHLORIDE. [Concomitant]
     Active Substance: SODIUM CHLORIDE
     Route: 042
     Dates: start: 20190523, end: 20190523
  68. LETROZOLE. [Suspect]
     Active Substance: LETROZOLE
     Indication: BREAST CANCER
     Route: 048
     Dates: start: 20180119, end: 20180126
  69. BENZYDAMINE [Concomitant]
     Active Substance: BENZYDAMINE
     Dosage: MOUTHWASH
     Dates: start: 20180414
  70. PARACETAMOL [Concomitant]
     Active Substance: ACETAMINOPHEN
     Indication: OEDEMA
     Route: 048
     Dates: start: 20180225, end: 20180301
  71. PARACETAMOL [Concomitant]
     Active Substance: ACETAMINOPHEN
     Route: 048
     Dates: start: 20180916, end: 20181002
  72. COLECALCIFEROL [Concomitant]
     Active Substance: CHOLECALCIFEROL
     Route: 048
     Dates: start: 20180920
  73. CYCLIZINE [Concomitant]
     Active Substance: CYCLIZINE
     Route: 048
     Dates: start: 20181102
  74. AQUACEL [Concomitant]
     Active Substance: CARBOXYMETHYLCELLULOSE SODIUM
     Route: 061
     Dates: start: 20181220, end: 20190116
  75. DUODERM CREAM [Concomitant]
     Route: 061
     Dates: start: 20181220, end: 20190116
  76. SILVER NITRATE. [Concomitant]
     Active Substance: SILVER NITRATE
     Route: 061
     Dates: start: 20190527, end: 20190527
  77. EUMOVATE [Concomitant]
     Active Substance: CLOBETASONE BUTYRATE
     Indication: SKIN ABRASION
  78. GENTAMYCIN [Concomitant]
     Active Substance: GENTAMICIN
     Route: 042
     Dates: start: 20190528, end: 20190528
  79. TOLNAFTATE. [Concomitant]
     Active Substance: TOLNAFTATE
     Route: 061
     Dates: start: 20181220, end: 20190116
  80. TRASTUZUMAB. [Suspect]
     Active Substance: TRASTUZUMAB
     Indication: BREAST CANCER
     Route: 058
     Dates: start: 20180202, end: 20180827
  81. LETROZOLE. [Suspect]
     Active Substance: LETROZOLE
     Route: 048
     Dates: start: 20180525, end: 20181011
  82. BENDROFLUMETHIAZIDE [Concomitant]
     Active Substance: BENDROFLUMETHIAZIDE
     Route: 048
     Dates: start: 20030114
  83. PENTASA [Concomitant]
     Active Substance: MESALAMINE
     Route: 048
     Dates: start: 20180730
  84. DOXAZOSIN [Concomitant]
     Active Substance: DOXAZOSIN MESYLATE
     Route: 048
     Dates: start: 20040816
  85. OMEPRAZOLE. [Concomitant]
     Active Substance: OMEPRAZOLE
     Route: 048
     Dates: start: 20091014
  86. COCODAMOL [Concomitant]
     Active Substance: ACETAMINOPHEN\CODEINE PHOSPHATE
     Dates: start: 20180302
  87. HYDROXOCOBALAMIN [Concomitant]
     Active Substance: HYDROXOCOBALAMIN
     Dosage: 1 MG/1 ML
     Route: 030
     Dates: start: 20020115
  88. PARACETAMOL [Concomitant]
     Active Substance: ACETAMINOPHEN
     Dosage: AS NEEDED
     Route: 048
     Dates: start: 20181003
  89. METRONIDAZOLE. [Concomitant]
     Active Substance: METRONIDAZOLE
     Indication: SEPSIS
     Route: 042
     Dates: start: 20181119, end: 20181121
  90. METRONIDAZOLE. [Concomitant]
     Active Substance: METRONIDAZOLE
     Dates: start: 20181122, end: 20181123
  91. METRONIDAZOLE. [Concomitant]
     Active Substance: METRONIDAZOLE
     Route: 042
     Dates: start: 20190526
  92. VANCOMYCIN [Concomitant]
     Active Substance: VANCOMYCIN
     Route: 042
     Dates: start: 20190526, end: 20190526
  93. HEPARIN SODIUM. [Concomitant]
     Active Substance: HEPARIN SODIUM
     Indication: PROPHYLAXIS
     Route: 042
     Dates: start: 20190502, end: 20191106
  94. BENDROFLUMETHIAZIDE [Concomitant]
     Active Substance: BENDROFLUMETHIAZIDE
     Route: 048
     Dates: start: 20190908
  95. DOXAZOSIN [Concomitant]
     Active Substance: DOXAZOSIN MESYLATE
     Route: 048
     Dates: start: 20190908
  96. METOCLOPRAMIDE. [Concomitant]
     Active Substance: METOCLOPRAMIDE
     Route: 048
     Dates: start: 20190909, end: 20190909
  97. VANCOMYCIN [Concomitant]
     Active Substance: VANCOMYCIN
     Indication: SEPSIS
     Route: 042
     Dates: start: 20181119, end: 20181119
  98. VANCOMYCIN [Concomitant]
     Active Substance: VANCOMYCIN
     Route: 042
     Dates: start: 20190527
  99. ONDANSETRON [Concomitant]
     Active Substance: ONDANSETRON
     Dosage: AS NEEDED
     Route: 048
     Dates: start: 20181216, end: 20190107
  100. SILVER NITRATE. [Concomitant]
     Active Substance: SILVER NITRATE
     Dosage: 1 UNIT
     Route: 061
     Dates: start: 20180329, end: 20180329
  101. GLUCOSE;POTASSIUM CHLORIDE;SODIUM CHLORIDE [Concomitant]
     Indication: GASTROINTESTINAL HAEMORRHAGE
     Dosage: 0.18% NACL 4% GLUCOSE + 20MML KCL
     Route: 042
     Dates: start: 20190525, end: 20190525
  102. DERMOLATE [Concomitant]
     Dosage: AS NEEDED
     Route: 061
     Dates: start: 20180605
  103. FERROUS FUMARATE [Concomitant]
     Active Substance: FERROUS FUMARATE
     Route: 048
     Dates: start: 20190730

REACTIONS (9)
  - C-reactive protein increased [Recovered/Resolved]
  - Mucosal inflammation [Recovered/Resolved]
  - Arthralgia [Not Recovered/Not Resolved]
  - Bone pain [Recovered/Resolved]
  - Diarrhoea [Recovered/Resolved]
  - Cancer pain [Recovered/Resolved]
  - Wound [Recovered/Resolved]
  - Oedema peripheral [Recovered/Resolved]
  - Vomiting [Recovered/Resolved]

NARRATIVE: CASE EVENT DATE: 20180225
